FAERS Safety Report 19686589 (Version 1)
Quarter: 2021Q3

REPORT INFORMATION
  Report Type: Report from Study
  Country: CA (occurrence: CA)
  Receive Date: 20210811
  Receipt Date: 20210811
  Transmission Date: 20211014
  Serious: Yes (Other)
  Sender: FDA-Public Use
  Company Number: CA-TEVA-2021-CA-1940283

PATIENT

DRUGS (1)
  1. AMIODARONE [Suspect]
     Active Substance: AMIODARONE
     Indication: ARRHYTHMIA SUPRAVENTRICULAR
     Dosage: 200 MILLIGRAM DAILY;
     Route: 065

REACTIONS (2)
  - Interstitial lung disease [Recovered/Resolved]
  - Restrictive pulmonary disease [Recovered/Resolved]
